FAERS Safety Report 4815104-9 (Version None)
Quarter: 2005Q4

REPORT INFORMATION
  Report Type: 
  Country: None (occurrence: None)
  Receive Date: 20051027
  Receipt Date: 20051019
  Transmission Date: 20060501
  Serious: Yes (Hospitalization, Disabling)
  Sender: FDA-Public Use
  Company Number: 2005140825

PATIENT
  Age: 85 Year
  Sex: Female
  Weight: 88.905 kg

DRUGS (7)
  1. PROCARDIA [Suspect]
     Indication: HYPERTENSION
     Dosage: ORAL
     Route: 048
  2. PROCARDIA XL [Suspect]
     Indication: HYPERTENSION
     Dosage: 60 MG (60 MG, DAILY), ORAL
     Route: 048
  3. NIFEDIPINE [Suspect]
     Indication: HYPERTENSION
  4. LEVOXYL [Concomitant]
  5. LASIX [Concomitant]
  6. NORVASC [Concomitant]
  7. CELEBREX [Concomitant]

REACTIONS (6)
  - CAROTID ARTERY STENOSIS [None]
  - CEREBROVASCULAR ACCIDENT [None]
  - DRUG EFFECT DECREASED [None]
  - PHARMACEUTICAL PRODUCT COMPLAINT [None]
  - RASH [None]
  - SPEECH DISORDER [None]
